FAERS Safety Report 10289735 (Version 2)
Quarter: 2014Q3

REPORT INFORMATION
  Report Type: Spontaneous
  Country: US (occurrence: US)
  Receive Date: 20140710
  Receipt Date: 20140710
  Transmission Date: 20150326
  Serious: No
  Sender: FDA-Public Use
  Company Number: US-MYLANLABS-2014S1006704

PATIENT
  Age: 68 Year
  Sex: Male
  Weight: 77.57 kg

DRUGS (6)
  1. METOPROLOL SUCCINATE EXTENDED-RELEASE TABLETS USP [Suspect]
     Active Substance: METOPROLOL SUCCINATE
     Indication: BLOOD PRESSURE MANAGEMENT
     Dosage: DOSE UNIT:12.5
     Route: 048
     Dates: start: 20140114
  2. SYNTHROID [Concomitant]
     Active Substance: LEVOTHYROXINE SODIUM
  3. METOPROLOL SUCCINATE EXTENDED-RELEASE TABLETS USP [Suspect]
     Active Substance: METOPROLOL SUCCINATE
     Indication: HEART RATE
     Dosage: DOSE UNIT:12.5
     Route: 048
     Dates: start: 20140114
  4. COUMADIN [Concomitant]
     Active Substance: WARFARIN SODIUM
  5. ALLOPURINOL. [Concomitant]
     Active Substance: ALLOPURINOL
  6. VASOTEC [Concomitant]
     Active Substance: ENALAPRIL MALEATE

REACTIONS (2)
  - Wrong technique in drug usage process [Not Recovered/Not Resolved]
  - No adverse event [Not Recovered/Not Resolved]

NARRATIVE: CASE EVENT DATE: 20140114
